FAERS Safety Report 21816498 (Version 1)
Quarter: 2023Q1

REPORT INFORMATION
  Report Type: Spontaneous
  Country: US (occurrence: None)
  Receive Date: 20230103
  Receipt Date: 20230103
  Transmission Date: 20230417
  Serious: Yes (Other)
  Sender: FDA-Public Use
  Company Number: None

PATIENT
  Age: 66 Year
  Sex: Female
  Weight: 73.8 kg

DRUGS (6)
  1. LEVOTHYROXINE SODIUM [Suspect]
     Active Substance: LEVOTHYROXINE SODIUM
     Indication: Hypothyroidism
     Dosage: OTHER QUANTITY : 1 TABLET(S);?
     Route: 048
     Dates: start: 20221217, end: 20221226
  2. Lexapro 5 mg daily [Concomitant]
  3. CLARITIN [Concomitant]
     Active Substance: LORATADINE
  4. vitamin D3 calcium supplements [Concomitant]
  5. 3000 mg of vitamin D three [Concomitant]
  6. CALCIUM [Concomitant]
     Active Substance: CALCIUM

REACTIONS (6)
  - Rash [None]
  - Pruritus [None]
  - Weight increased [None]
  - Product odour abnormal [None]
  - Pulmonary pain [None]
  - Abdominal distension [None]

NARRATIVE: CASE EVENT DATE: 20221219
